FAERS Safety Report 8035594 (Version 2)
Quarter: 2013Q1

REPORT INFORMATION
  Report Type: Report from Study
  Country: MX (occurrence: MX)
  Receive Date: 20110714
  Receipt Date: 20130226
  Transmission Date: 20140127
  Serious: Yes (Death, Life-Threatening, Hospitalization)
  Sender: FDA-Public Use
  Company Number: MX-BRISTOL-MYERS SQUIBB COMPANY-15892615

PATIENT
  Age: 78 Year
  Sex: Male

DRUGS (3)
  1. IPILIMUMAB [Suspect]
     Indication: PROSTATE CANCER
     Dosage: 1 DF:542 UNIT NOT  CLEAR
     Route: 042
     Dates: start: 20110407, end: 20110611
  2. OMEPRAZOLE [Concomitant]
     Dates: start: 20110414
  3. ONDANSETRON [Concomitant]
     Dates: start: 20110611

REACTIONS (4)
  - Renal failure [Fatal]
  - Gastrointestinal haemorrhage [Recovered/Resolved with Sequelae]
  - Nausea [Recovered/Resolved with Sequelae]
  - Vomiting [Recovered/Resolved with Sequelae]
